FAERS Safety Report 15653821 (Version 1)
Quarter: 2018Q4

REPORT INFORMATION
  Report Type: Spontaneous
  Country: US (occurrence: US)
  Receive Date: 20181123
  Receipt Date: 20181123
  Transmission Date: 20190205
  Serious: No
  Sender: FDA-Public Use
  Company Number: None

PATIENT
  Age: 30 Year
  Sex: Female
  Weight: 49.5 kg

DRUGS (5)
  1. ELIDEL [Suspect]
     Active Substance: PIMECROLIMUS
     Indication: PERIORAL DERMATITIS
     Route: 061
     Dates: start: 20181109, end: 20181112
  2. ACIDOPHILIUS [Concomitant]
  3. PRENATAL VITAMIN [Concomitant]
     Active Substance: VITAMINS
  4. VITAMIN D [Concomitant]
     Active Substance: CHOLECALCIFEROL
  5. FLAXSEED [Concomitant]
     Active Substance: FLAX SEED

REACTIONS (3)
  - Drug ineffective [None]
  - Discomfort [None]
  - Dermatitis [None]

NARRATIVE: CASE EVENT DATE: 20181109
